FAERS Safety Report 4851869-8 (Version None)
Quarter: 2005Q4

REPORT INFORMATION
  Report Type: 
  Country: None (occurrence: None)
  Receive Date: 20051125
  Receipt Date: 20050211
  Transmission Date: 20060501
  Serious: Yes (Other)
  Sender: FDA-Public Use
  Company Number: 2005028840

PATIENT
  Age: 72 Year
  Sex: Male
  Weight: 97 kg

DRUGS (7)
  1. TIKOSYN [Suspect]
     Indication: ATRIAL FIBRILLATION
     Dosage: 1000 MCG (500 MCG, 2 IN 1 D), ORAL
     Route: 048
     Dates: start: 20050209
  2. SIMVASTATIN [Concomitant]
  3. ATENOLOL [Concomitant]
  4. OLMESARTAN MEDOXOMIL [Concomitant]
  5. AMLODIPINE BESYLATE [Concomitant]
  6. ACETYLSALICYLIC ACID SRT [Concomitant]
  7. LANSOPRAZOLE [Concomitant]

REACTIONS (3)
  - BLOOD CALCIUM DECREASED [None]
  - ELECTROCARDIOGRAM QT CORRECTED INTERVAL [None]
  - HYPERGLYCAEMIA [None]
